FAERS Safety Report 16235178 (Version 3)
Quarter: 2020Q3

REPORT INFORMATION
  Report Type: Report from Study
  Country: PL (occurrence: PL)
  Receive Date: 20190424
  Receipt Date: 20200924
  Transmission Date: 20201102
  Serious: Yes (Hospitalization, Other)
  Sender: FDA-Public Use
  Company Number: PHHY2019PL038738

PATIENT
  Age: 67 Year
  Sex: Female

DRUGS (1)
  1. TASIGNA [Suspect]
     Active Substance: NILOTINIB
     Indication: LEUKAEMIA
     Dosage: 400 MG, BID
     Route: 065
     Dates: start: 2011

REACTIONS (17)
  - Chest discomfort [Unknown]
  - Chest pain [Unknown]
  - Left ventricular hypertrophy [Unknown]
  - Thyroid calcification [Unknown]
  - Mitral valve incompetence [Unknown]
  - Aortic valve stenosis [Unknown]
  - Angina pectoris [Unknown]
  - Aortic valve disease [Unknown]
  - Aortic valve incompetence [Unknown]
  - Thyroid mass [Unknown]
  - Left ventricular dysfunction [Unknown]
  - Left atrial enlargement [Unknown]
  - Tricuspid valve incompetence [Unknown]
  - Coronary artery stenosis [Unknown]
  - Hyperthyroidism [Unknown]
  - Dyspnoea [Recovering/Resolving]
  - Goitre [Unknown]
